FAERS Safety Report 15103057 (Version 1)
Quarter: 2018Q3

REPORT INFORMATION
  Report Type: Spontaneous
  Country: SK (occurrence: SK)
  Receive Date: 20180703
  Receipt Date: 20180703
  Transmission Date: 20181010
  Serious: Yes (Hospitalization)
  Sender: FDA-Public Use
  Company Number: SK-PFIZER INC-2018265021

PATIENT
  Age: 83 Year
  Sex: Female
  Weight: 61 kg

DRUGS (20)
  1. RIVAROXABAN [Concomitant]
     Active Substance: RIVAROXABAN
     Indication: ATRIAL FIBRILLATION
     Dosage: 15 MG, 1X/DAY(QD)
     Route: 048
     Dates: start: 20180525
  2. PHOSPHORUS [Concomitant]
     Active Substance: PHOSPHORUS
     Indication: OSTEOPOROSIS
     Dosage: 3 G, 1X/DAY (QD)
     Route: 048
     Dates: start: 2010
  3. FLUCONAZOLE. [Suspect]
     Active Substance: FLUCONAZOLE
     Indication: PRODUCT USED FOR UNKNOWN INDICATION
     Route: 065
  4. MAGNESIUM [Concomitant]
     Active Substance: MAGNESIUM
     Indication: OSTEOPOROSIS
     Dosage: 3 G, 1X/DAY(QD)
     Route: 048
     Dates: start: 2010
  5. DIGOXIN. [Concomitant]
     Active Substance: DIGOXIN
     Indication: ATRIAL TACHYCARDIA
     Dosage: 0.13 MG, ALTERNATE DAY (QOD)
     Route: 048
  6. SOLIFENACIN [Concomitant]
     Active Substance: SOLIFENACIN
     Indication: URINARY INCONTINENCE
     Dosage: 10 MG, 1X/DAY(QD)
     Route: 048
     Dates: start: 20180416
  7. SPIRONOLACTONE. [Concomitant]
     Active Substance: SPIRONOLACTONE
     Dosage: 25 MG, 1X/DAY (QD)
     Route: 048
     Dates: start: 20180420, end: 20180509
  8. BLINDED LCZ696 [Suspect]
     Active Substance: SACUBITRIL\VALSARTAN
     Indication: CARDIAC FAILURE
     Dosage: CODE NOT BROKEN
     Route: 048
     Dates: start: 20160524, end: 20180329
  9. ALFACALCIDOL [Concomitant]
     Active Substance: ALFACALCIDOL
     Indication: OSTEOPOROSIS
     Dosage: 1 UG, 1X/DAY (QD)
     Route: 048
     Dates: start: 20120719
  10. ATORVASTATIN [Concomitant]
     Active Substance: ATORVASTATIN
     Indication: DYSLIPIDAEMIA
     Dosage: 10 MG, 1X/DAY (QD)
     Route: 048
     Dates: start: 20180330
  11. BROMAZEPAM [Concomitant]
     Active Substance: BROMAZEPAM
     Indication: DEPRESSION
     Dosage: 1.5 MG, 1X/DAY(QD)
     Route: 048
     Dates: start: 20180329, end: 20180525
  12. RIVAROXABAN [Concomitant]
     Active Substance: RIVAROXABAN
     Dosage: 15 MG, 1X/DAY(QD)
     Route: 048
     Dates: start: 20170626, end: 20180518
  13. FUROSEMIDE. [Concomitant]
     Active Substance: FUROSEMIDE
     Indication: CARDIAC FAILURE
     Dosage: 125 MG, 1X/DAY (QD)
     Route: 048
     Dates: start: 20180509
  14. FUROSEMIDE. [Concomitant]
     Active Substance: FUROSEMIDE
     Dosage: 125 MG, 1X/DAY (QD)
     Route: 048
     Dates: end: 20180507
  15. CALCIUM [Concomitant]
     Active Substance: CALCIUM
     Indication: OSTEOPOROSIS
     Dosage: 3 G, 1X/DAY (QD)
     Route: 048
     Dates: start: 2010
  16. METOPROLOL TARTRATE. [Concomitant]
     Active Substance: METOPROLOL TARTRATE
     Indication: ATRIAL TACHYCARDIA
     Dosage: 100 MG, 2X/DAY (100 MG, BID)
     Route: 048
     Dates: end: 20180509
  17. GLYCERYL TRINITRATE [Concomitant]
     Active Substance: NITROGLYCERIN
     Indication: ANGINA PECTORIS
     Dosage: 0.5 MG, AS NEEDED (PRN)
     Route: 058
     Dates: start: 20110420
  18. CIPROFLOXACIN. [Suspect]
     Active Substance: CIPROFLOXACIN
     Indication: PRODUCT USED FOR UNKNOWN INDICATION
     Route: 065
  19. SPIRONOLACTONE. [Concomitant]
     Active Substance: SPIRONOLACTONE
     Indication: CARDIAC FAILURE
     Dosage: 25 MG, 1X/DAY (QD)
     Route: 048
     Dates: start: 20180525
  20. AMOXICILLIN/CLAVULANIC ACID [Suspect]
     Active Substance: AMOXICILLIN\CLAVULANIC ACID
     Indication: PRODUCT USED FOR UNKNOWN INDICATION
     Route: 065

REACTIONS (1)
  - Clostridium difficile colitis [Recovering/Resolving]

NARRATIVE: CASE EVENT DATE: 20180509
